FAERS Safety Report 14667630 (Version 1)
Quarter: 2018Q1

REPORT INFORMATION
  Report Type: Spontaneous
  Country: US (occurrence: US)
  Receive Date: 20180320
  Receipt Date: 20180320
  Transmission Date: 20180509
  Serious: Yes (Death)
  Sender: FDA-Public Use
  Company Number: None

PATIENT
  Age: 71 Year
  Sex: Male

DRUGS (1)
  1. DOETILIDE 0.25 MG MAYNE [Suspect]
     Active Substance: DOFETILIDE
     Indication: ATRIAL FIBRILLATION
     Route: 048
     Dates: start: 20150331, end: 20180309

REACTIONS (2)
  - Respiratory failure [None]
  - Pneumonia [None]

NARRATIVE: CASE EVENT DATE: 20180309
